FAERS Safety Report 20608984 (Version 3)
Quarter: 2022Q2

REPORT INFORMATION
  Report Type: Spontaneous
  Country: DE (occurrence: None)
  Receive Date: 20220317
  Receipt Date: 20220408
  Transmission Date: 20220720
  Serious: Yes (Other)
  Sender: FDA-Public Use
  Company Number: 2022A109060

PATIENT
  Age: 77 Year
  Sex: Female
  Weight: 72 kg

DRUGS (22)
  1. FULVESTRANT [Suspect]
     Active Substance: FULVESTRANT
     Indication: Breast cancer
     Dosage: 500 MG, Q4W,SPECT DRUG(S) (INCLUDE GENERIC NAME)JLVESTRANT(FULVESTRANT)
     Route: 030
     Dates: start: 20200127
  2. FULVESTRANT [Suspect]
     Active Substance: FULVESTRANT
     Indication: Breast cancer
     Dosage: 500 MG
     Route: 030
     Dates: start: 20191230, end: 20200126
  3. KISQALI [Suspect]
     Active Substance: RIBOCICLIB
     Indication: Breast cancer metastatic
     Dosage: 600 MG, QD,21 DAYS INTAKE, 7 DAYS PAUSE
     Route: 048
     Dates: start: 20210204
  4. KISQALI [Suspect]
     Active Substance: RIBOCICLIB
     Indication: Breast cancer
     Dosage: 600 MG, QD,21 DAYS INTAKE, 7 DAYS PAUSE
     Route: 048
     Dates: start: 20210204
  5. KISQALI [Suspect]
     Active Substance: RIBOCICLIB
     Indication: Breast cancer metastatic
     Dosage: 600 MG, QD,21 DAYS INTAKE, 7 DAYS PAUSE
     Route: 048
     Dates: start: 20200225, end: 20200518
  6. KISQALI [Suspect]
     Active Substance: RIBOCICLIB
     Indication: Breast cancer
     Dosage: 600 MG, QD,21 DAYS INTAKE, 7 DAYS PAUSE
     Route: 048
     Dates: start: 20200225, end: 20200518
  7. KISQALI [Suspect]
     Active Substance: RIBOCICLIB
     Indication: Breast cancer metastatic
     Dosage: 600 MG, QD,21 DAYS INTAKE, 7 DAYS PAUSE
     Route: 048
     Dates: start: 20200526, end: 20201215
  8. KISQALI [Suspect]
     Active Substance: RIBOCICLIB
     Indication: Breast cancer
     Dosage: 600 MG, QD,21 DAYS INTAKE, 7 DAYS PAUSE
     Route: 048
     Dates: start: 20200526, end: 20201215
  9. KISQALI [Suspect]
     Active Substance: RIBOCICLIB
     Indication: Breast cancer metastatic
     Dosage: 600 MG, QD, 21 DAYS INTAKE, 7 DAYS PAUSE
     Route: 048
     Dates: start: 20200127, end: 20200223
  10. KISQALI [Suspect]
     Active Substance: RIBOCICLIB
     Indication: Breast cancer
     Dosage: 600 MG, QD, 21 DAYS INTAKE, 7 DAYS PAUSE
     Route: 048
     Dates: start: 20200127, end: 20200223
  11. KISQALI [Suspect]
     Active Substance: RIBOCICLIB
     Indication: Breast cancer metastatic
     Dosage: 600 MG, QD, 21 DAYS INTAKE, 7 DAYS PAUSE
     Route: 048
     Dates: start: 20201217, end: 20210201
  12. KISQALI [Suspect]
     Active Substance: RIBOCICLIB
     Indication: Breast cancer
     Dosage: 600 MG, QD, 21 DAYS INTAKE, 7 DAYS PAUSE
     Route: 048
     Dates: start: 20201217, end: 20210201
  13. ZOLEDRONIC ACID [Suspect]
     Active Substance: ZOLEDRONIC ACID
     Indication: Metastases to bone
     Dosage: 3 MG
     Route: 042
     Dates: start: 20191206, end: 20200817
  14. ZOLEDRONIC ACID [Suspect]
     Active Substance: ZOLEDRONIC ACID
     Indication: Metastases to bone
     Dosage: 3.3 MG, Q4W
     Route: 042
     Dates: start: 20191206, end: 20200817
  15. LERCANIDIPINE [Concomitant]
     Active Substance: LERCANIDIPINE
     Indication: Hypertension
     Dosage: 19 MG, QD,1 DF (18,88 MG) QD (MORNING)
     Route: 048
     Dates: start: 20200303
  16. LERCANIDIPINE [Concomitant]
     Active Substance: LERCANIDIPINE
     Indication: Hypertension
     Dosage: 18.88 MG, QD
     Dates: start: 20200303
  17. BISOPROLOL [Concomitant]
     Active Substance: BISOPROLOL
     Indication: Hypertension
     Dosage: 5 MG, QD
     Route: 048
     Dates: start: 1990
  18. BISOPROLOL [Concomitant]
     Active Substance: BISOPROLOL
     Indication: Hypertension
     Dosage: 5 MG, QD,??-???-1990
     Route: 048
  19. DENOSUMAB [Concomitant]
     Active Substance: DENOSUMAB
     Indication: Product used for unknown indication
     Dosage: 120 MG, QM,120 MG, QMO (EVERY FOUR WEEKS)
     Route: 058
     Dates: start: 20200914
  20. HYDROCHLOROTHIAZIDE\RAMIPRIL [Concomitant]
     Active Substance: HYDROCHLOROTHIAZIDE\RAMIPRIL
     Dosage: UNK UNK, QD
  21. RAMIPRIL [Concomitant]
     Active Substance: RAMIPRIL
     Indication: Hypertension
     Dosage: 5 MG, QD,??-???-1990
  22. RAMIPRIL [Concomitant]
     Active Substance: RAMIPRIL
     Indication: Hypertension
     Dosage: 5 MG, QD
     Route: 048
     Dates: start: 1990

REACTIONS (8)
  - Anaemia [Recovered/Resolved]
  - Eastern Cooperative Oncology Group performance status worsened [Not Recovered/Not Resolved]
  - Blood creatinine increased [Not Recovered/Not Resolved]
  - Dyspnoea [Not Recovered/Not Resolved]
  - Blood pressure increased [Not Recovered/Not Resolved]
  - Pruritus [Recovering/Resolving]
  - Diabetes mellitus [Not Recovered/Not Resolved]
  - Hyponatraemia [Recovered/Resolved]

NARRATIVE: CASE EVENT DATE: 20200224
